FAERS Safety Report 17244490 (Version 1)
Quarter: 2020Q1

REPORT INFORMATION
  Report Type: Spontaneous
  Country: TR (occurrence: AE)
  Receive Date: 20200107
  Receipt Date: 20200107
  Transmission Date: 20200409
  Serious: Yes (Other)
  Sender: FDA-Public Use
  Company Number: TR-GILEAD-2020-0445116AA

PATIENT
  Sex: Male

DRUGS (3)
  1. RIBAVIRIN. [Suspect]
     Active Substance: RIBAVIRIN
     Indication: CHRONIC HEPATITIS C
     Route: 065
  2. INTERFERON [Suspect]
     Active Substance: INTERFERON
     Indication: CHRONIC HEPATITIS C
     Route: 065
  3. HARVONI [Suspect]
     Active Substance: LEDIPASVIR\SOFOSBUVIR
     Indication: CHRONIC HEPATITIS C
     Route: 065

REACTIONS (2)
  - Treatment failure [Unknown]
  - Liver transplant [Unknown]
